FAERS Safety Report 6623492-6 (Version None)
Quarter: 2010Q1

REPORT INFORMATION
  Report Type: 
  Country: None (occurrence: None)
  Receive Date: 20100304
  Receipt Date: 20100218
  Transmission Date: 20100710
  Serious: Yes (Other)
  Sender: FDA-Public Use
  Company Number: 2010-0603

PATIENT
  Age: 31 Year
  Sex: Female

DRUGS (1)
  1. DYSPORT [Suspect]
     Indication: PARESIS
     Dosage: 1500 UNITS (1500 UNITS,SINGLE CYCLE), PARENTERAL
     Route: 051

REACTIONS (7)
  - BOTULISM [None]
  - DYSPHAGIA [None]
  - DYSPHONIA [None]
  - IATROGENIC INFECTION [None]
  - MUSCULAR WEAKNESS [None]
  - PNEUMONIA ASPIRATION [None]
  - RESPIRATORY DISTRESS [None]
